FAERS Safety Report 20390588 (Version 8)
Quarter: 2022Q3

REPORT INFORMATION
  Report Type: Report from Study
  Country: US (occurrence: US)
  Receive Date: 20220128
  Receipt Date: 20220930
  Transmission Date: 20221027
  Serious: No
  Sender: FDA-Public Use
  Company Number: US-NOVARTISTESTPH-NVSC2022US016731

PATIENT
  Age: 62 Year
  Sex: Male

DRUGS (2)
  1. ENTRESTO [Suspect]
     Active Substance: SACUBITRIL\VALSARTAN
     Indication: Product used for unknown indication
     Dosage: 1 DOSAGE FORM, BID (24/26 MG)
     Route: 048
     Dates: start: 20220114
  2. ENTRESTO [Suspect]
     Active Substance: SACUBITRIL\VALSARTAN
     Dosage: 1 DOSAGE FORM (24/26 MG), BID
     Route: 065

REACTIONS (9)
  - Concomitant disease aggravated [Unknown]
  - Weight fluctuation [Unknown]
  - Limb discomfort [Unknown]
  - Back disorder [Unknown]
  - Panic disorder [Unknown]
  - Weight increased [Unknown]
  - Blood thyroid stimulating hormone increased [Unknown]
  - Thyroid hormones increased [Unknown]
  - Vascular occlusion [Unknown]

NARRATIVE: CASE EVENT DATE: 20220301
